FAERS Safety Report 9113891 (Version 1)
Quarter: 2013Q1

REPORT INFORMATION
  Report Type: Report from Study
  Country: DE (occurrence: DE)
  Receive Date: 20130208
  Receipt Date: 20130208
  Transmission Date: 20140127
  Serious: Yes (Hospitalization)
  Sender: FDA-Public Use
  Company Number: DE-ABBOTT-13P-062-1045099-00

PATIENT
  Sex: Male
  Weight: 72 kg

DRUGS (4)
  1. HUMIRA [Suspect]
     Indication: PSORIATIC ARTHROPATHY
     Route: 058
     Dates: start: 201103
  2. METHOTREXATE [Concomitant]
     Indication: PSORIATIC ARTHROPATHY
     Dates: start: 201209, end: 201210
  3. METFORMIN [Concomitant]
     Indication: DIABETES MELLITUS
     Dates: start: 201006
  4. LEVEMIR [Concomitant]
     Indication: DIABETES MELLITUS
     Dates: start: 201205

REACTIONS (4)
  - Hepatic infarction [Unknown]
  - Neoplasm malignant [Recovering/Resolving]
  - Liver disorder [Unknown]
  - Transaminases increased [Recovering/Resolving]
